FAERS Safety Report 6297581-2 (Version None)
Quarter: 2009Q3

REPORT INFORMATION
  Report Type: 
  Country: None (occurrence: None)
  Receive Date: 20090805
  Receipt Date: 20090731
  Transmission Date: 20100115
  Serious: Yes (Life-Threatening, Disabling, Other)
  Sender: FDA-Public Use
  Company Number: GB-BRISTOL-MYERS SQUIBB COMPANY-14724371

PATIENT
  Age: 75 Year
  Sex: Male

DRUGS (14)
  1. TRAZODONE HCL [Suspect]
     Indication: DEPRESSION
     Route: 048
     Dates: start: 20090121, end: 20090331
  2. BYETTA [Suspect]
     Indication: DIABETES MELLITUS
     Dosage: 1 DF=10 UNITS NOT SPECIFIED
     Route: 058
     Dates: start: 20021121, end: 20090331
  3. ALLOPURINOL [Concomitant]
  4. ASPIRIN [Concomitant]
  5. ATORVASTATIN [Concomitant]
  6. CARVEDILOL [Concomitant]
  7. COLCHICINE [Concomitant]
  8. ENALAPRIL MALEATE [Concomitant]
  9. FUROSEMIDE [Concomitant]
  10. GLYCERYL TRINITRATE [Concomitant]
  11. ISPAGHULA [Concomitant]
     Dosage: ISPAGHULA HUSK
  12. NICORANDIL [Concomitant]
  13. PARACETAMOL [Concomitant]
  14. QUININE SULFATE [Concomitant]

REACTIONS (1)
  - RENAL FAILURE ACUTE [None]
